FAERS Safety Report 8973958 (Version 2)
Quarter: 2013Q1

REPORT INFORMATION
  Report Type: Spontaneous
  Country: FI (occurrence: FI)
  Receive Date: 20121218
  Receipt Date: 20130312
  Transmission Date: 20140127
  Serious: Yes (Hospitalization, Other)
  Sender: FDA-Public Use
  Company Number: PHHY2012FI115642

PATIENT
  Age: 20 Year
  Sex: Female

DRUGS (1)
  1. GILENYA [Suspect]
     Indication: MULTIPLE SCLEROSIS
     Dosage: UNK UKN, UNK
     Route: 048
     Dates: start: 20121203, end: 20121205

REACTIONS (21)
  - Congestive cardiomyopathy [Recovered/Resolved]
  - Dyspnoea [Unknown]
  - Extrasystoles [Unknown]
  - Hypothermia [Unknown]
  - Restlessness [Unknown]
  - Peripheral coldness [Unknown]
  - Myocarditis [Recovered/Resolved]
  - Heart rate decreased [Unknown]
  - Ataxia [Unknown]
  - Electrocardiogram ST segment depression [Recovering/Resolving]
  - PCO2 decreased [Unknown]
  - PO2 decreased [Unknown]
  - Blood bicarbonate decreased [Unknown]
  - Base excess decreased [Unknown]
  - Blood calcium decreased [Unknown]
  - Blood lactic acid increased [Unknown]
  - Brain natriuretic peptide increased [Unknown]
  - Ejection fraction decreased [Recovering/Resolving]
  - Electrocardiogram T wave inversion [Recovering/Resolving]
  - Electrocardiogram abnormal [Recovering/Resolving]
  - Troponin T increased [Unknown]
